FAERS Safety Report 20938910 (Version 1)
Quarter: 2022Q2

REPORT INFORMATION
  Report Type: Spontaneous
  Country: IT (occurrence: IT)
  Receive Date: 20220609
  Receipt Date: 20220609
  Transmission Date: 20220721
  Serious: Yes (Other)
  Sender: FDA-Public Use
  Company Number: None

PATIENT
  Age: 51 Year
  Sex: Female

DRUGS (9)
  1. TOPIRAMATE [Suspect]
     Active Substance: TOPIRAMATE
     Indication: Bipolar disorder
     Dosage: 200 MILLIGRAM, QD
     Route: 048
     Dates: start: 20210101
  2. ACETAMINOPHEN [Suspect]
     Active Substance: ACETAMINOPHEN
     Indication: Analgesic therapy
     Dosage: 1 GRAM, PRN, AS NECESSARY
     Route: 048
     Dates: start: 20210101
  3. VALPROIC ACID [Suspect]
     Active Substance: VALPROIC ACID
     Indication: Bipolar disorder
     Dosage: 2 DOSAGE FORM, QD
     Route: 048
     Dates: start: 20210101
  4. VALPROIC ACID [Suspect]
     Active Substance: VALPROIC ACID
     Indication: Bipolar disorder
     Dosage: 300 MILLIGRAM (1 DOSAGE FORM), QD
     Route: 048
     Dates: start: 20210101
  5. LEVOMEPROMAZINE [Suspect]
     Active Substance: LEVOMEPROMAZINE
     Indication: Bipolar disorder
     Dosage: 25 MILLIGRAM, QD
     Route: 048
     Dates: start: 20210101
  6. ZUCLOPENTHIXOL [Suspect]
     Active Substance: ZUCLOPENTHIXOL
     Indication: Bipolar disorder
     Dosage: 1 DOSAGE FORM, CYCLE
     Route: 048
     Dates: start: 20210101
  7. FENOFIBRATE [Suspect]
     Active Substance: FENOFIBRATE
     Indication: Hypercholesterolaemia
     Dosage: 200 MILLIGRAM, QD
     Route: 048
     Dates: start: 20210101
  8. CLOTHIAPINE [Suspect]
     Active Substance: CLOTHIAPINE
     Indication: Bipolar disorder
     Dosage: 22 GTT DROPS (DROP (1/12 MILLILITRE)), QD
     Route: 048
     Dates: start: 20210101
  9. AKINETON [Concomitant]
     Active Substance: BIPERIDEN HYDROCHLORIDE
     Indication: Bipolar disorder
     Dosage: 4 MILLIGRAM, QD
     Route: 048

REACTIONS (2)
  - Thrombocytopenia [Unknown]
  - Leukopenia [Unknown]

NARRATIVE: CASE EVENT DATE: 20220522
